FAERS Safety Report 4336271-X (Version None)
Quarter: 2004Q2

REPORT INFORMATION
  Report Type: 
  Country: None (occurrence: None)
  Receive Date: 20040407
  Receipt Date: 20040316
  Transmission Date: 20050107
  Serious: Yes (Other)
  Sender: FDA-Public Use
  Company Number: US_020382880

PATIENT
  Age: 8 Year
  Sex: Female

DRUGS (1)
  1. HUMATROPE [Suspect]
     Indication: GROWTH HORMONE DEFICIENCY
     Dosage: 2.2 MG/DAY
     Dates: start: 20020123

REACTIONS (4)
  - EYE SWELLING [None]
  - MOOD SWINGS [None]
  - NERVOUS SYSTEM DISORDER [None]
  - SOMNOLENCE [None]
